FAERS Safety Report 4851539-6 (Version None)
Quarter: 2005Q4

REPORT INFORMATION
  Report Type: 
  Country: None (occurrence: None)
  Receive Date: 20051212
  Receipt Date: 20051129
  Transmission Date: 20060501
  Serious: Yes (Hospitalization)
  Sender: FDA-Public Use
  Company Number: US-ROCHE-426854

PATIENT
  Age: 59 Year
  Sex: Female

DRUGS (4)
  1. KLONOPIN [Suspect]
     Indication: ANXIETY
     Route: 048
  2. BENADRYL [Concomitant]
     Route: 048
     Dates: start: 20050615, end: 20050615
  3. HYDROCORTISONE [Concomitant]
     Route: 061
  4. PERCOCET [Concomitant]
     Indication: BACK PAIN
     Dosage: REGIMEN REPORTED AS ^1 TO 2 Q4H^
     Route: 048

REACTIONS (2)
  - BURNING SENSATION [None]
  - OVERDOSE [None]
